FAERS Safety Report 24817674 (Version 1)
Quarter: 2025Q1

REPORT INFORMATION
  Report Type: Spontaneous
  Country: US (occurrence: US)
  Receive Date: 20250108
  Receipt Date: 20250108
  Transmission Date: 20250409
  Serious: No
  Sender: TEVA
  Company Number: US-TEVA-VS-3278439

PATIENT
  Sex: Female

DRUGS (1)
  1. AJOVY [Suspect]
     Active Substance: FREMANEZUMAB-VFRM
     Indication: Migraine
     Dosage: 225/1.5MG/ML
     Route: 065
     Dates: start: 202402, end: 20241219

REACTIONS (3)
  - Injection site urticaria [Unknown]
  - Injection site swelling [Unknown]
  - Injection site rash [Unknown]

NARRATIVE: CASE EVENT DATE: 20240201
